FAERS Safety Report 5634025-5 (Version None)
Quarter: 2008Q1

REPORT INFORMATION
  Report Type: 
  Country: None (occurrence: None)
  Receive Date: 20080221
  Receipt Date: 20080221
  Transmission Date: 20080703
  Serious: Yes (Life-Threatening, Hospitalization)
  Sender: FDA-Public Use
  Company Number: None

PATIENT
  Age: 51 Year
  Sex: Male
  Weight: 99.3377 kg

DRUGS (1)
  1. HEPARIN [Suspect]
     Indication: THROMBOSIS
     Dosage: 7000-8000 IV PLUS INJECTIONS
     Dates: start: 20071107, end: 20071113

REACTIONS (2)
  - BLOOD PRESSURE DECREASED [None]
  - PULMONARY THROMBOSIS [None]
